FAERS Safety Report 16873731 (Version 1)
Quarter: 2019Q4

REPORT INFORMATION
  Report Type: Spontaneous
  Country: NL (occurrence: NL)
  Receive Date: 20191001
  Receipt Date: 20191001
  Transmission Date: 20200122
  Serious: Yes (Other)
  Sender: FDA-Public Use
  Company Number: PHHY2019NL210506

PATIENT
  Sex: Female
  Weight: 86 kg

DRUGS (8)
  1. TRAVOPROST. [Suspect]
     Active Substance: TRAVOPROST
     Indication: INTRAOCULAR PRESSURE TEST
     Dosage: UNK (IN THE EVENING)
     Route: 065
  2. EUTHYROX [Concomitant]
     Active Substance: LEVOTHYROXINE SODIUM
     Indication: THYROID DISORDER
     Dosage: UNK
     Route: 065
  3. BRINZOLAMIDE [Suspect]
     Active Substance: BRINZOLAMIDE
     Indication: PRODUCT USED FOR UNKNOWN INDICATION
     Dosage: UNK UNK, TID
     Route: 065
  4. VALSARTAN. [Concomitant]
     Active Substance: VALSARTAN
     Indication: HYPERTENSION
     Dosage: UNK
     Route: 065
  5. CICLESONIDE [Suspect]
     Active Substance: CICLESONIDE
     Indication: ASTHMA
     Dosage: 2 DF, QID (2 PUFFERS AFTER BREAKFAST AND 2 PUFFERS BEFORE GOING TO SLEEP)
     Route: 065
  6. CLOPIDOGREL [Concomitant]
     Active Substance: CLOPIDOGREL BISULFATE
     Indication: TRANSIENT ISCHAEMIC ATTACK
     Route: 065
  7. SALBUTAMOL [Suspect]
     Active Substance: ALBUTEROL
     Indication: ASTHMA
     Dosage: 500 UG, QD (2 PUFFERS AFTER BREAKFAST AND 2 PUFFERS BEFORE GOING TO SLEEP, ALSO TOOK A PUF)
     Route: 065
  8. HYLAN [Suspect]
     Active Substance: CARBOXYPOLYMETHYLENE\HYALURONATE SODIUM
     Indication: BLEPHARITIS
     Dosage: UNK UNK, TID
     Route: 065

REACTIONS (4)
  - Intraocular pressure increased [Unknown]
  - Cataract [Unknown]
  - Tinnitus [Unknown]
  - Blepharitis [Unknown]
